FAERS Safety Report 5450457-2 (Version None)
Quarter: 2007Q3

REPORT INFORMATION
  Report Type: 
  Country: None (occurrence: None)
  Receive Date: 20070803
  Receipt Date: 20070613
  Transmission Date: 20080115
  Serious: No
  Sender: FDA-Public Use
  Company Number: 200711874BWH

PATIENT
  Age: 78 Year
  Sex: Male
  Weight: 79.3795 kg

DRUGS (7)
  1. NEXAVAR [Suspect]
     Indication: RENAL CELL CARCINOMA STAGE UNSPECIFIED
     Dosage: BID, ORAL; QD, ORAL
     Route: 048
     Dates: start: 20061001, end: 20070201
  2. NEXAVAR [Suspect]
     Indication: RENAL CELL CARCINOMA STAGE UNSPECIFIED
     Dosage: BID, ORAL; QD, ORAL
     Route: 048
     Dates: start: 20070201
  3. POTASSIUM CHLORIDE [Concomitant]
  4. NITROGLYCERIN [Concomitant]
  5. TOPROL-XL [Concomitant]
  6. PLAVIX [Concomitant]
  7. ASPIRIN [Concomitant]

REACTIONS (6)
  - ABDOMINAL PAIN UPPER [None]
  - ANOREXIA [None]
  - DIARRHOEA [None]
  - FATIGUE [None]
  - PALLOR [None]
  - SKIN ULCER [None]
